FAERS Safety Report 4829677-3 (Version None)
Quarter: 2005Q4

REPORT INFORMATION
  Report Type: 
  Country: None (occurrence: None)
  Receive Date: 20051027
  Receipt Date: 20041229
  Transmission Date: 20060501
  Serious: Yes (Disabling, Other)
  Sender: FDA-Public Use
  Company Number: HQWYE186516JUL04

PATIENT
  Age: 47 Year
  Sex: Female
  Weight: 61.29 kg

DRUGS (8)
  1. PREMARIN [Suspect]
     Indication: HORMONE REPLACEMENT THERAPY
     Dates: start: 19920101, end: 20030514
  2. ASPIRIN [Concomitant]
  3. ACCUPRIL [Concomitant]
  4. CLONIDINE HCL [Concomitant]
  5. KLOR-CON [Concomitant]
  6. AVANDIA [Concomitant]
  7. CRESTOR [Concomitant]
  8. PLAVIX [Concomitant]

REACTIONS (1)
  - CEREBROVASCULAR ACCIDENT [None]
